FAERS Safety Report 13056301 (Version 1)
Quarter: 2016Q4

REPORT INFORMATION
  Report Type: Report from Study
  Country: US (occurrence: US)
  Receive Date: 20161222
  Receipt Date: 20161222
  Transmission Date: 20170207
  Serious: Yes (Hospitalization, Other)
  Sender: FDA-Public Use
  Company Number: US-BAXALTA-2016BLT009529

PATIENT
  Sex: Female

DRUGS (1)
  1. HYQVIA [Suspect]
     Active Substance: HUMAN IMMUNOGLOBULIN G\HYALURONIDASE RECOMBINANT HUMAN
     Indication: IMMUNODEFICIENCY COMMON VARIABLE
     Dosage: UNK
     Route: 065

REACTIONS (12)
  - Fatigue [Unknown]
  - Asthenia [Unknown]
  - Flank pain [Unknown]
  - Pernicious anaemia [Unknown]
  - Viral infection [Unknown]
  - Blood cortisol decreased [Unknown]
  - Bacterial infection [Unknown]
  - Vitamin D decreased [Unknown]
  - Vomiting [Unknown]
  - Ear infection [Unknown]
  - Dehydration [Unknown]
  - Hypokalaemia [Unknown]
